FAERS Safety Report 8428272-7 (Version None)
Quarter: 2012Q2

REPORT INFORMATION
  Report Type: 
  Country: None (occurrence: None)
  Receive Date: 20120611
  Receipt Date: 20120516
  Transmission Date: 20120825
  Serious: No
  Sender: FDA-Public Use
  Company Number: US-ASTRAZENECA-2012SE26247

PATIENT
  Age: 8 Year
  Sex: Male
  Weight: 31.8 kg

DRUGS (1)
  1. PULMICORT FLEXHALER [Suspect]
     Indication: ASTHMA
     Dosage: 180 MCG, TWO TIMES A DAY
     Route: 055

REACTIONS (4)
  - ASTHMA [None]
  - OXYGEN SATURATION DECREASED [None]
  - INTENTIONAL DRUG MISUSE [None]
  - CHEST PAIN [None]
